FAERS Safety Report 19143678 (Version 1)
Quarter: 2021Q2

REPORT INFORMATION
  Report Type: Spontaneous
  Country: HR (occurrence: HR)
  Receive Date: 20210415
  Receipt Date: 20210415
  Transmission Date: 20210717
  Serious: Yes (Hospitalization, Other)
  Sender: FDA-Public Use
  Company Number: HR-009507513-2104HRV001968

PATIENT
  Age: 66 Year
  Sex: Male

DRUGS (2)
  1. KEYTRUDA [Suspect]
     Active Substance: PEMBROLIZUMAB
     Indication: METASTATIC MALIGNANT MELANOMA
     Dosage: 2MG/KG BODY WEIGHT = 178 MG EVERY 3 WEEKS.
     Dates: start: 201803, end: 2018
  2. KEYTRUDA [Suspect]
     Active Substance: PEMBROLIZUMAB
     Dosage: 200 MG INTRAVENOUSLY EVERY 3 WEEKS.
     Route: 042
     Dates: start: 201812, end: 20191014

REACTIONS (14)
  - Drug-induced liver injury [Unknown]
  - Pancreatitis necrotising [Unknown]
  - Arteriosclerosis coronary artery [Unknown]
  - Hepatic steatosis [Unknown]
  - Pancreatitis acute [Unknown]
  - Cholelithiasis [Unknown]
  - Pneumonitis [Unknown]
  - Deep vein thrombosis [Unknown]
  - Hepatic cyst [Unknown]
  - Hepatomegaly [Unknown]
  - Type 2 diabetes mellitus [Unknown]
  - Intestinal haemorrhage [Unknown]
  - Atelectasis [Unknown]
  - Aortic arteriosclerosis [Unknown]
